FAERS Safety Report 8601346 (Version 2)
Quarter: 2013Q1

REPORT INFORMATION
  Report Type: Report from Study
  Country: US (occurrence: US)
  Receive Date: 20120606
  Receipt Date: 20130320
  Transmission Date: 20140127
  Serious: Yes (Other)
  Sender: FDA-Public Use
  Company Number: US-ROCHE-1073537

PATIENT
  Sex: 0

DRUGS (3)
  1. RITUXIMAB [Suspect]
     Indication: B-CELL LYMPHOMA RECURRENT
     Route: 065
  2. LENALIDOMIDE [Suspect]
     Indication: B-CELL LYMPHOMA RECURRENT
     Dosage: CYCLE 1
     Route: 065
  3. LENALIDOMIDE [Suspect]
     Dosage: CYCLES 2-12, ADMINISTERED DAYS 1-21 Q 28 DAYS X 12 CYCLES
     Route: 065

REACTIONS (3)
  - Neutropenia [Unknown]
  - Fatigue [Unknown]
  - Thrombosis [Unknown]
